FAERS Safety Report 13100016 (Version 3)
Quarter: 2017Q2

REPORT INFORMATION
  Report Type: Report from Study
  Country: US (occurrence: US)
  Receive Date: 20170110
  Receipt Date: 20170503
  Transmission Date: 20170830
  Serious: Yes (Other)
  Sender: FDA-Public Use
  Company Number: US-BIOGEN-2017BI00340351

PATIENT
  Age: 67 Year
  Sex: Female

DRUGS (1)
  1. PLEGRIDY [Suspect]
     Active Substance: PEGINTERFERON BETA-1A
     Indication: MULTIPLE SCLEROSIS
     Route: 058
     Dates: start: 20161109

REACTIONS (7)
  - Concussion [Unknown]
  - Breast cancer metastatic [Not Recovered/Not Resolved]
  - Loss of consciousness [Unknown]
  - Lung cancer metastatic [Not Recovered/Not Resolved]
  - Soft tissue swelling [Unknown]
  - Fall [Recovered/Resolved]
  - Headache [Unknown]

NARRATIVE: CASE EVENT DATE: 201612
